FAERS Safety Report 8507091-7 (Version None)
Quarter: 2012Q3

REPORT INFORMATION
  Report Type: 
  Country: None (occurrence: None)
  Receive Date: 20120703
  Receipt Date: 20120619
  Transmission Date: 20120928
  Serious: Yes (Other)
  Sender: FDA-Public Use
  Company Number: DSA_58210_2012

PATIENT
  Sex: Female

DRUGS (3)
  1. LISINOPRIL [Concomitant]
  2. WELLBUTRIN [Suspect]
     Indication: DEPRESSION
     Dosage: (DF ORAL)
     Route: 048
  3. METFORMIN HCL [Concomitant]

REACTIONS (9)
  - NAUSEA [None]
  - SUICIDAL IDEATION [None]
  - MENTAL DISORDER [None]
  - SWELLING [None]
  - DIZZINESS [None]
  - MIGRAINE [None]
  - DRUG INEFFECTIVE [None]
  - FLUID RETENTION [None]
  - HALLUCINATION [None]
